FAERS Safety Report 20016073 (Version 1)
Quarter: 2021Q4

REPORT INFORMATION
  Report Type: Spontaneous
  Country: US (occurrence: None)
  Receive Date: 20211103
  Receipt Date: 20211103
  Transmission Date: 20220303
  Serious: Yes (Disabling)
  Sender: FDA-Public Use
  Company Number: None

PATIENT
  Age: 5 Year
  Sex: Male
  Weight: 24.75 kg

DRUGS (3)
  1. KETAMINE [Suspect]
     Active Substance: KETAMINE
     Indication: Caesarean section
     Route: 058
     Dates: start: 20160314, end: 20160314
  2. chlonodine [Concomitant]
  3. BACLOFEN [Concomitant]
     Active Substance: BACLOFEN

REACTIONS (12)
  - Infantile apnoea [None]
  - Dyspnoea [None]
  - Accidental overdose [None]
  - Dysphagia [None]
  - Developmental delay [None]
  - Maternal drugs affecting foetus [None]
  - Aphasia [None]
  - Communication disorder [None]
  - Muscle spasticity [None]
  - Pain [None]
  - Cerebral palsy [None]
  - Brain injury [None]

NARRATIVE: CASE EVENT DATE: 20160314
